FAERS Safety Report 7998878-8 (Version None)
Quarter: 2011Q4

REPORT INFORMATION
  Report Type: 
  Country: None (occurrence: None)
  Receive Date: 20111221
  Receipt Date: 20111215
  Transmission Date: 20120403
  Serious: Yes (Other)
  Sender: FDA-Public Use
  Company Number: CA-GLAXOSMITHKLINE-A0958332A

PATIENT
  Sex: Male
  Weight: 79.5 kg

DRUGS (3)
  1. VENTOLIN [Concomitant]
  2. ADVAIR DISKUS 100/50 [Suspect]
     Indication: BRONCHITIS
     Dosage: 1PUFF TWICE PER DAY
     Route: 055
  3. TYLENOL W/ CODEINE NO. 3 [Concomitant]

REACTIONS (4)
  - ARTHRALGIA [None]
  - RHEUMATOID ARTHRITIS [None]
  - ABASIA [None]
  - DYSGEUSIA [None]
